FAERS Safety Report 4948246-8 (Version None)
Quarter: 2006Q1

REPORT INFORMATION
  Report Type: 
  Country: None (occurrence: None)
  Receive Date: 20060313
  Receipt Date: 20060227
  Transmission Date: 20060701
  Serious: Yes (Other)
  Sender: FDA-Public Use
  Company Number: 28495

PATIENT
  Age: 73 Year
  Sex: Male

DRUGS (4)
  1. ALDARA [Suspect]
     Indication: BASAL CELL CARCINOMA
     Dosage: 1 UNSPEC., 5 IN 1 WEEK (S))
     Route: 061
     Dates: start: 20051206, end: 20060114
  2. PREDNISOLONE [Concomitant]
  3. ESOMEPRAZOLE [Concomitant]
  4. ALENDRONIC ACID [Concomitant]

REACTIONS (1)
  - NEURALGIA [None]
